FAERS Safety Report 10590923 (Version 2)
Quarter: 2014Q4

REPORT INFORMATION
  Report Type: Report from Study
  Country: IL (occurrence: IL)
  Receive Date: 20141118
  Receipt Date: 20141121
  Transmission Date: 20150529
  Serious: Yes (Congenital Anomaly, Other)
  Sender: FDA-Public Use
  Company Number: IL-JNJFOC-20141111285

PATIENT
  Sex: Male
  Weight: 2.87 kg

DRUGS (2)
  1. INTELENCE [Suspect]
     Active Substance: ETRAVIRINE
     Indication: HIV INFECTION
     Route: 064
  2. EPZICOM [Suspect]
     Active Substance: ABACAVIR SULFATE\LAMIVUDINE
     Indication: HIV INFECTION
     Route: 064
     Dates: start: 20140219

REACTIONS (4)
  - Ventricular septal defect [Unknown]
  - Premature baby [Not Recovered/Not Resolved]
  - Atrial septal defect [Unknown]
  - Foetal exposure during pregnancy [Recovered/Resolved]
